FAERS Safety Report 13940394 (Version 4)
Quarter: 2018Q1

REPORT INFORMATION
  Report Type: Spontaneous
  Country: IT (occurrence: IT)
  Receive Date: 20170906
  Receipt Date: 20180313
  Transmission Date: 20180508
  Serious: Yes (Hospitalization, Other)
  Sender: FDA-Public Use
  Company Number: IT-PFIZER INC-2017381376

PATIENT
  Age: 76 Year
  Sex: Female

DRUGS (5)
  1. XANAX [Suspect]
     Active Substance: ALPRAZOLAM
     Dosage: 78 MG, TOTAL
     Route: 048
     Dates: start: 20170710
  2. XANAX [Suspect]
     Active Substance: ALPRAZOLAM
     Indication: DEPRESSION
     Dosage: 1 MG, 2X/DAY (1 MG, 1 TABLET X 2 /DIE)
     Route: 048
  3. VENLAFAXINE HCL [Suspect]
     Active Substance: VENLAFAXINE HYDROCHLORIDE
     Dosage: 2812.5 MG, TOTAL
     Route: 048
     Dates: start: 20170710
  4. XANAX [Suspect]
     Active Substance: ALPRAZOLAM
     Dosage: 1 MG 1 TABLET IN THE MORNING AND 3 MG 1 TABLET IN THE EVENING
     Route: 048
  5. VENLAFAXINE HCL [Suspect]
     Active Substance: VENLAFAXINE HYDROCHLORIDE
     Indication: DEPRESSION
     Dosage: 37.5 MG, 2X/DAY
     Route: 048

REACTIONS (8)
  - Intentional self-injury [Unknown]
  - Anxiety [Unknown]
  - Overdose [Unknown]
  - Disorientation [Unknown]
  - Hyporesponsive to stimuli [Unknown]
  - Drug abuse [Unknown]
  - Confusional state [Unknown]
  - Suicidal ideation [Unknown]

NARRATIVE: CASE EVENT DATE: 20170710
